FAERS Safety Report 19763786 (Version 1)
Quarter: 2021Q3

REPORT INFORMATION
  Report Type: Other
  Country: CH (occurrence: CH)
  Receive Date: 20210830
  Receipt Date: 20210830
  Transmission Date: 20211014
  Serious: No
  Sender: FDA-Public Use
  Company Number: CH-ROCHE-2893737

PATIENT
  Sex: Female

DRUGS (4)
  1. KESIMPTA [Concomitant]
     Active Substance: OFATUMUMAB
  2. TECFIDERA [Concomitant]
     Active Substance: DIMETHYL FUMARATE
  3. OCREVUS [Suspect]
     Active Substance: OCRELIZUMAB
     Indication: MULTIPLE SCLEROSIS
     Route: 065
  4. GILENYA [Concomitant]
     Active Substance: FINGOLIMOD HYDROCHLORIDE

REACTIONS (5)
  - Sinusitis [Unknown]
  - COVID-19 [Unknown]
  - Antibody test negative [Unknown]
  - Abdominal pain upper [Unknown]
  - Flushing [Unknown]
